FAERS Safety Report 16598171 (Version 1)
Quarter: 2019Q3

REPORT INFORMATION
  Report Type: Spontaneous
  Country: US (occurrence: US)
  Receive Date: 20190719
  Receipt Date: 20190719
  Transmission Date: 20191004
  Serious: No
  Sender: FDA-Public Use
  Company Number: US-BAYER-2019-131244

PATIENT
  Sex: Male

DRUGS (1)
  1. ALEVE [Suspect]
     Active Substance: NAPROXEN SODIUM
     Dosage: 1 DF, TID
     Route: 065
     Dates: start: 201906

REACTIONS (2)
  - Pain in extremity [Unknown]
  - Product use issue [Unknown]

NARRATIVE: CASE EVENT DATE: 201906
